FAERS Safety Report 15684957 (Version 1)
Quarter: 2018Q4

REPORT INFORMATION
  Report Type: Spontaneous
  Country: US (occurrence: US)
  Receive Date: 20181204
  Receipt Date: 20181204
  Transmission Date: 20190205
  Serious: Yes (Hospitalization)
  Sender: FDA-Public Use
  Company Number: US-ANTARES PHARMA, INC.-2018-LIT-ME-0577

PATIENT
  Age: 47 Year
  Sex: Male

DRUGS (2)
  1. METHOTREXATE. [Suspect]
     Active Substance: METHOTREXATE
     Indication: DYSHIDROTIC ECZEMA
     Dosage: UNK, QWK, 2 INJECTIONS
  2. METHOTREXATE. [Suspect]
     Active Substance: METHOTREXATE
     Indication: OFF LABEL USE

REACTIONS (9)
  - Parakeratosis [Recovered/Resolved]
  - Inflammation [Recovered/Resolved]
  - Dermatitis exfoliative generalised [Recovered/Resolved]
  - Treatment failure [Recovered/Resolved]
  - Dermatitis [Recovered/Resolved]
  - Acanthosis [Recovered/Resolved]
  - Hypersensitivity [Recovered/Resolved]
  - Langerhans^ cell histiocytosis [Unknown]
  - Rash [Recovered/Resolved]
